FAERS Safety Report 24243315 (Version 2)
Quarter: 2024Q3

REPORT INFORMATION
  Report Type: Spontaneous
  Country: US (occurrence: US)
  Receive Date: 20240823
  Receipt Date: 20240828
  Transmission Date: 20241017
  Serious: Yes (Other)
  Sender: BRISTOL MYERS SQUIBB
  Company Number: US-BRISTOL-MYERS SQUIBB COMPANY-2024-129700

PATIENT
  Age: 32 Year
  Sex: Female

DRUGS (2)
  1. TRIAMCINOLONE ACETONIDE [Suspect]
     Active Substance: TRIAMCINOLONE ACETONIDE
     Indication: Intervertebral disc protrusion
     Dosage: TRANSFORAMINAL ESI; BILATERAL L5-S1 TRANSFORAMINAL EPIDURAL STEROID INJECTIONS WITH AN INJECTATE OF
  2. BUPIVACAINE [Suspect]
     Active Substance: BUPIVACAINE
     Indication: Intervertebral disc protrusion
     Dosage: TRANSFORAMINAL ESI; BILATERAL L5-S1 TRANSFORAMINAL EPIDURAL STEROID INJECTIONS WITH 1ML OF 0.25% BUP

REACTIONS (2)
  - Cushing^s syndrome [Unknown]
  - Off label use [Unknown]
